FAERS Safety Report 24134091 (Version 1)
Quarter: 2024Q3

REPORT INFORMATION
  Report Type: Spontaneous
  Country: US (occurrence: US)
  Receive Date: 20240724
  Receipt Date: 20240724
  Transmission Date: 20241017
  Serious: No
  Sender: BRISTOL MYERS SQUIBB
  Company Number: US-BRISTOL-MYERS SQUIBB COMPANY-2024-113803

PATIENT
  Age: 75 Year
  Sex: Female

DRUGS (2)
  1. ORENCIA [Suspect]
     Active Substance: ABATACEPT
     Indication: Rheumatoid arthritis
     Route: 058
     Dates: start: 202310
  2. TERIPARATIDE [Concomitant]
     Active Substance: TERIPARATIDE
     Indication: Product used for unknown indication
     Dosage: TERIPARATIDE PEN

REACTIONS (1)
  - Rheumatoid arthritis [Not Recovered/Not Resolved]
